FAERS Safety Report 10608251 (Version 1)
Quarter: 2014Q4

REPORT INFORMATION
  Report Type: Other
  Country: DE (occurrence: DE)
  Receive Date: 20141125
  Receipt Date: 20141125
  Transmission Date: 20150529
  Serious: Yes (Other)
  Sender: FDA-Public Use
  Company Number: DE-ASTELLAS-2014US017875

PATIENT
  Age: 33 Year
  Sex: Female

DRUGS (18)
  1. AZATHIOPRINE. [Suspect]
     Active Substance: AZATHIOPRINE
     Route: 048
     Dates: start: 2014
  2. METHYLDOPA. [Suspect]
     Active Substance: METHYLDOPA
     Dates: start: 2010
  3. AMPICILLIN [Concomitant]
     Active Substance: AMPICILLIN
     Indication: ANTIBIOTIC PROPHYLAXIS
     Dosage: UNK UNK, UNKNOWN FREQ.
     Dates: start: 20140114, end: 20140114
  4. PROGRAF [Suspect]
     Active Substance: TACROLIMUS\TACROLIMUS ANHYDROUS
     Dosage: 3-2.5 MG, ONCE DAILY
     Route: 048
     Dates: start: 2007
  5. METOPROLOL SUCCINATE. [Suspect]
     Active Substance: METOPROLOL SUCCINATE
     Dosage: 95-47.5 MG, ONCE DAILY
     Route: 048
     Dates: start: 2012
  6. L-THYROXIN HENNING [Concomitant]
     Indication: HYPOTHYROIDISM
     Route: 048
     Dates: start: 20130702, end: 20140114
  7. AMLODIPINE [Concomitant]
     Active Substance: AMLODIPINE BESYLATE
     Indication: RENAL HYPERTENSION
     Route: 048
  8. PROGRAF [Suspect]
     Active Substance: TACROLIMUS\TACROLIMUS ANHYDROUS
     Indication: PROPHYLAXIS AGAINST TRANSPLANT REJECTION
     Route: 048
     Dates: start: 20130702, end: 20140114
  9. DAS GESUNDE PLUS - FOLS?URE [Concomitant]
     Indication: PROPHYLAXIS OF NEURAL TUBE DEFECT
     Dosage: 0.6 MG, ONCE DAILY
     Route: 048
     Dates: start: 20130702, end: 20131217
  10. BELOC                              /00376903/ [Concomitant]
     Active Substance: METOPROLOL TARTRATE
     Indication: RENAL HYPERTENSION
     Route: 048
     Dates: start: 20140114, end: 20140114
  11. PARTUSISTEN [Concomitant]
     Active Substance: FENOTEROL
     Indication: TOCOLYSIS
     Dosage: UNK UNK, UNKNOWN FREQ.
     Route: 042
     Dates: start: 20140114, end: 20140114
  12. ADALAT [Concomitant]
     Active Substance: NIFEDIPINE
     Indication: TOCOLYSIS
     Dosage: UNK UNK, UNKNOWN FREQ.
     Route: 042
  13. METOPROLOL SUCCINATE. [Suspect]
     Active Substance: METOPROLOL SUCCINATE
     Indication: RENAL HYPERTENSION
     Route: 048
     Dates: start: 20130702, end: 20131217
  14. BETAMETHASONE [Concomitant]
     Active Substance: BETAMETHASONE
     Indication: MATERNAL THERAPY TO ENHANCE FOETAL LUNG MATURITY
     Dosage: UNK UNK, UNKNOWN FREQ.
     Route: 065
  15. METHYLDOPA. [Suspect]
     Active Substance: METHYLDOPA
     Indication: RENAL HYPERTENSION
     Dosage: 500 UNK, ONCE DAILY
     Route: 048
     Dates: start: 20130702, end: 20140114
  16. DEKRISTOL [Concomitant]
     Active Substance: CHOLECALCIFEROL
     Indication: VITAMIN SUPPLEMENTATION
     Route: 048
     Dates: start: 20130702, end: 20131217
  17. DEKRISTOL [Concomitant]
     Active Substance: CHOLECALCIFEROL
     Dosage: 20000 IE, ONCE WEEKLY
     Route: 048
     Dates: start: 2007
  18. AZATHIOPRINE. [Suspect]
     Active Substance: AZATHIOPRINE
     Indication: PROPHYLAXIS AGAINST TRANSPLANT REJECTION
     Route: 048
     Dates: start: 20130702, end: 20140114

REACTIONS (7)
  - Cervical incompetence [Unknown]
  - Exposure during pregnancy [Unknown]
  - Polyhydramnios [Recovered/Resolved]
  - Caesarean section [Unknown]
  - Premature labour [Unknown]
  - Premature delivery [Unknown]
  - Preterm premature rupture of membranes [Unknown]
